FAERS Safety Report 17274080 (Version 1)
Quarter: 2020Q1

REPORT INFORMATION
  Report Type: Spontaneous
  Country: US (occurrence: US)
  Receive Date: 20200115
  Receipt Date: 20200115
  Transmission Date: 20200409
  Serious: Yes (Other)
  Sender: FDA-Public Use
  Company Number: None

PATIENT
  Age: 62 Year
  Sex: Male

DRUGS (1)
  1. OPDIVO [Suspect]
     Active Substance: NIVOLUMAB
     Indication: METASTATIC MALIGNANT MELANOMA
     Dosage: ?          QUANTITY:12 INJECTION(S);OTHER FREQUENCY:MONTHLY;?
     Route: 042
     Dates: start: 20180315, end: 20190402

REACTIONS (4)
  - Diarrhoea [None]
  - Weight decreased [None]
  - Hypotension [None]
  - Cachexia [None]

NARRATIVE: CASE EVENT DATE: 20191108
